FAERS Safety Report 5183606-4 (Version None)
Quarter: 2006Q4

REPORT INFORMATION
  Report Type: 
  Country: None (occurrence: None)
  Receive Date: 20061220
  Receipt Date: 20061214
  Transmission Date: 20070319
  Serious: Yes (Disabling)
  Sender: FDA-Public Use
  Company Number: US-MERCK-0612USA02661

PATIENT
  Age: 52 Year
  Sex: Female

DRUGS (4)
  1. FOSAMAX PLUS D [Suspect]
     Indication: OSTEOPOROSIS
     Route: 048
     Dates: start: 20030101, end: 20061214
  2. FLEXERIL [Concomitant]
     Route: 048
  3. LUNESTA [Concomitant]
     Route: 065
  4.  [Concomitant]
     Route: 065

REACTIONS (3)
  - BACK DISORDER [None]
  - PAIN IN JAW [None]
  - RESORPTION BONE INCREASED [None]
